FAERS Safety Report 20823637 (Version 3)
Quarter: 2023Q1

REPORT INFORMATION
  Report Type: Report from Study
  Country: US (occurrence: US)
  Receive Date: 20220513
  Receipt Date: 20230214
  Transmission Date: 20230417
  Serious: Yes (Other)
  Sender: FDA-Public Use
  Company Number: US-ABBVIE-22K-163-4392916-00

PATIENT
  Age: 67 Year
  Sex: Female

DRUGS (4)
  1. HUMIRA [Suspect]
     Active Substance: ADALIMUMAB
     Indication: Crohn^s disease
     Dosage: CITRATE FREE
     Route: 058
     Dates: start: 20220426
  2. MODERNA COVID-19 VACCINE [Concomitant]
     Active Substance: ELASOMERAN
     Indication: COVID-19 immunisation
     Dosage: 1ST DOSE, ONCE
     Route: 030
     Dates: start: 20210121, end: 20210121
  3. MODERNA COVID-19 VACCINE [Concomitant]
     Active Substance: ELASOMERAN
     Indication: COVID-19 immunisation
     Dosage: 2ND DOSE, ONCE
     Route: 030
     Dates: start: 20210222, end: 20210222
  4. MODERNA COVID-19 VACCINE [Concomitant]
     Active Substance: ELASOMERAN
     Indication: COVID-19 immunisation
     Dosage: 3RD DOSE (BOOSTER), ONCE
     Route: 030
     Dates: start: 20220314, end: 20220314

REACTIONS (7)
  - Gastrointestinal obstruction [Recovering/Resolving]
  - Abdominal rigidity [Unknown]
  - Sinusitis [Recovering/Resolving]
  - Aphonia [Recovered/Resolved]
  - Pain [Recovered/Resolved]
  - Hypersensitivity [Recovering/Resolving]
  - Intestinal stenosis [Unknown]

NARRATIVE: CASE EVENT DATE: 20220428
